FAERS Safety Report 19745489 (Version 2)
Quarter: 2021Q4

REPORT INFORMATION
  Report Type: Spontaneous
  Country: DE (occurrence: DE)
  Receive Date: 20210825
  Receipt Date: 20211014
  Transmission Date: 20220303
  Serious: Yes (Other)
  Sender: FDA-Public Use
  Company Number: None

PATIENT
  Age: 77 Year
  Sex: Female

DRUGS (9)
  1. ASPIRIN [Suspect]
     Active Substance: ASPIRIN
     Indication: Product used for unknown indication
     Dosage: 100 MILLIGRAM, QD
  2. METOPROLOL [Suspect]
     Active Substance: METOPROLOL
     Indication: Blood pressure increased
     Dosage: 50 MILLIGRAM, BID (1/2-0-1/2)
  3. RAMIPRIL [Suspect]
     Active Substance: RAMIPRIL
     Indication: Blood pressure increased
     Dosage: 5 MILLIGRAM, QD (0-0-1)
  4. EFEROX [Suspect]
     Active Substance: LEVOTHYROXINE SODIUM
     Indication: Hypothyroidism
     Dosage: 75 MICROGRAM, QD
  5. HERBALS [Suspect]
     Active Substance: HERBALS
     Indication: Product used for unknown indication
     Dosage: UNK
  6. EZETIMIBE\SIMVASTATIN [Suspect]
     Active Substance: EZETIMIBE\SIMVASTATIN
     Indication: Lipid metabolism disorder
     Dosage: 1 DOSAGE FORM, QD (0-0-1)
  7. GINKGO [Suspect]
     Active Substance: GINKGO
     Indication: Product used for unknown indication
     Dosage: 40 MILLIGRAM, BID (1-0-1)
  8. CALCIUM PANTOTHENATE\NIACINAMIDE\PYRIDOXINE HYDROCHLORIDE\RIBOFLAVIN\T [Suspect]
     Active Substance: CALCIUM PANTOTHENATE\NIACINAMIDE\PYRIDOXINE HYDROCHLORIDE\RIBOFLAVIN\THIAMINE HYDROCHLORIDE
     Indication: Product used for unknown indication
     Dosage: UNK
  9. CHOLECALCIFEROL [Suspect]
     Active Substance: CHOLECALCIFEROL
     Indication: Product used for unknown indication
     Dosage: 1 DOSAGE FORM, Q2W

REACTIONS (1)
  - Polyneuropathy [Not Recovered/Not Resolved]
